FAERS Safety Report 14071521 (Version 2)
Quarter: 2020Q2

REPORT INFORMATION
  Report Type: Spontaneous
  Country: US (occurrence: US)
  Receive Date: 20171010
  Receipt Date: 20200410
  Transmission Date: 20200713
  Serious: No
  Sender: FDA-Public Use
  Company Number: US-SA-2017SA132399

PATIENT
  Age: 38 Year
  Sex: Female

DRUGS (2)
  1. DUPIXENT [Suspect]
     Active Substance: DUPILUMAB
     Indication: DERMATITIS ATOPIC
     Dosage: 600 MG,1X
     Route: 058
     Dates: start: 201705, end: 201705
  2. DUPIXENT [Suspect]
     Active Substance: DUPILUMAB
     Dosage: 300 MG, QOW
     Route: 058
     Dates: start: 201706, end: 2018

REACTIONS (6)
  - Hot flush [Unknown]
  - Feeling hot [Unknown]
  - Allergy to chemicals [Unknown]
  - Erythema [Unknown]
  - Pruritus [Recovered/Resolved]
  - Skin tightness [Unknown]

NARRATIVE: CASE EVENT DATE: 2017
